FAERS Safety Report 9450599 (Version 1)
Quarter: 2013Q3

REPORT INFORMATION
  Report Type: Spontaneous
  Country: US (occurrence: US)
  Receive Date: 20130809
  Receipt Date: 20130809
  Transmission Date: 20140515
  Serious: Yes (Hospitalization)
  Sender: FDA-Public Use
  Company Number: US-BAYER-2013-096537

PATIENT
  Age: 26 Year
  Sex: Female

DRUGS (5)
  1. YAZ [Suspect]
  2. YASMIN [Suspect]
  3. PREDNISONE [Concomitant]
     Dosage: 20 MG, X3 DAY
  4. SYNTHROID [Concomitant]
     Dosage: 50 ?G, DAILY
  5. PLAQUENIL [Concomitant]
     Dosage: 200 MG, DAILY

REACTIONS (1)
  - Pulmonary embolism [None]
